FAERS Safety Report 9290663 (Version 1)
Quarter: 2013Q2

REPORT INFORMATION
  Report Type: Spontaneous
  Country: GR (occurrence: GR)
  Receive Date: 20130515
  Receipt Date: 20130515
  Transmission Date: 20140414
  Serious: Yes (Death, Hospitalization)
  Sender: FDA-Public Use
  Company Number: GR-SANOFI-AVENTIS-2013SA048807

PATIENT
  Age: 18 Month
  Sex: Male

DRUGS (14)
  1. LINEZOLID [Suspect]
     Indication: TUBERCULOSIS OF CENTRAL NERVOUS SYSTEM
     Route: 065
  2. COLISTIN [Suspect]
     Indication: TUBERCULOSIS OF CENTRAL NERVOUS SYSTEM
     Dosage: PROLONGED SYSTEMIC AND INTRAVENTRICULAR ADMINISTRATION
     Route: 065
  3. ISONIAZID [Suspect]
     Indication: TUBERCULOSIS OF CENTRAL NERVOUS SYSTEM
     Route: 065
  4. ISONIAZID [Suspect]
     Indication: TUBERCULOSIS OF CENTRAL NERVOUS SYSTEM
     Route: 065
  5. RIFAMPICIN [Suspect]
     Indication: TUBERCULOSIS OF CENTRAL NERVOUS SYSTEM
     Route: 065
  6. PYRAZINAMIDE [Suspect]
     Indication: TUBERCULOSIS OF CENTRAL NERVOUS SYSTEM
     Route: 065
  7. LEVOFLOXACIN [Suspect]
     Indication: TUBERCULOSIS OF CENTRAL NERVOUS SYSTEM
     Route: 065
  8. LEVOFLOXACIN [Suspect]
     Indication: TUBERCULOSIS OF CENTRAL NERVOUS SYSTEM
     Route: 065
  9. STREPTOMYCIN [Suspect]
     Indication: TUBERCULOSIS OF CENTRAL NERVOUS SYSTEM
     Route: 065
  10. CAPREOMYCIN [Suspect]
     Indication: TUBERCULOSIS OF CENTRAL NERVOUS SYSTEM
     Route: 065
  11. CYCLOSERINE [Suspect]
     Indication: TUBERCULOSIS OF CENTRAL NERVOUS SYSTEM
     Route: 065
  12. DEXAMETHASONE [Concomitant]
     Indication: TUBERCULOSIS OF CENTRAL NERVOUS SYSTEM
     Dosage: FOLLOWED BY A REDUCING COURSE OVER 4 WEEKS
  13. DEXAMETHASONE [Concomitant]
     Indication: TUBERCULOSIS OF CENTRAL NERVOUS SYSTEM
     Dosage: FOLLOWED BY A REDUCING COURSE OVER 4 WEEKS
  14. VITAMIN B6 [Concomitant]
     Indication: TUBERCULOSIS OF CENTRAL NERVOUS SYSTEM

REACTIONS (5)
  - Hepatic failure [Fatal]
  - Aspartate aminotransferase increased [Fatal]
  - Alanine aminotransferase increased [Fatal]
  - Gamma-glutamyltransferase increased [Fatal]
  - Blood bilirubin increased [Fatal]
